FAERS Safety Report 25354646 (Version 1)
Quarter: 2025Q2

REPORT INFORMATION
  Report Type: Spontaneous
  Country: US (occurrence: US)
  Receive Date: 20250524
  Receipt Date: 20250524
  Transmission Date: 20250717
  Serious: No
  Sender: ABBVIE
  Company Number: US-ABBVIE-6286366

PATIENT

DRUGS (3)
  1. BOTOX [Suspect]
     Active Substance: ONABOTULINUMTOXINA
     Indication: Product used for unknown indication
     Route: 065
     Dates: start: 20250318, end: 20250318
  2. XARELTO [Concomitant]
     Active Substance: RIVAROXABAN
     Indication: Thrombosis
  3. JUVEDERM VOLUMA XC [Suspect]
     Active Substance: HYALURONIC ACID\LIDOCAINE HYDROCHLORIDE
     Indication: Product used for unknown indication
     Route: 065
     Dates: start: 20250318

REACTIONS (7)
  - Facial pain [Unknown]
  - Nodule [Unknown]
  - Swelling face [Unknown]
  - Periorbital swelling [Unknown]
  - Urticaria [Unknown]
  - Eye contusion [Unknown]
  - Thrombosis [Unknown]

NARRATIVE: CASE EVENT DATE: 20250502
